FAERS Safety Report 16169871 (Version 1)
Quarter: 2019Q2

REPORT INFORMATION
  Report Type: Report from Study
  Country: US (occurrence: US)
  Receive Date: 20190408
  Receipt Date: 20190408
  Transmission Date: 20190711
  Serious: Yes (Other)
  Sender: FDA-Public Use
  Company Number: US-MYLANLABS-2019M1031395

PATIENT
  Age: 59 Year
  Sex: Male

DRUGS (2)
  1. VORICONAZOLE. [Suspect]
     Active Substance: VORICONAZOLE
     Indication: MENINGITIS COCCIDIOIDES
     Route: 065
  2. FLUCONAZOLE. [Suspect]
     Active Substance: FLUCONAZOLE
     Indication: MENINGITIS COCCIDIOIDES
     Dosage: FIRST TIME DURATION WAS 1252 DAYS AND SECOND TIME FOR 941 DAYS
     Route: 065

REACTIONS (4)
  - Nausea [Unknown]
  - Drug-induced liver injury [Unknown]
  - Vomiting [Unknown]
  - Treatment failure [Unknown]
